FAERS Safety Report 4354647-1 (Version None)
Quarter: 2004Q2

REPORT INFORMATION
  Report Type: 
  Country: None (occurrence: None)
  Receive Date: 20040506
  Receipt Date: 20040506
  Transmission Date: 20050107
  Serious: Yes (Hospitalization)
  Sender: FDA-Public Use
  Company Number: None

PATIENT
  Age: 16 Year
  Sex: Female
  Weight: 59.7 kg

DRUGS (5)
  1. DAUNORUBICIN HCL [Suspect]
     Indication: ACUTE PROMYELOCYTIC LEUKAEMIA
     Dosage: 50 MG/M2 X 10 DOSES IV
     Route: 042
     Dates: start: 20031024, end: 20040123
  2. TRETINOIN [Suspect]
     Indication: ACUTE PROMYELOCYTIC LEUKAEMIA
     Dosage: 45 MG/M2 DAILY ORAL
     Route: 048
     Dates: start: 20031022, end: 20040408
  3. METHOTREXATE [Concomitant]
  4. MERCAPTOPURINE [Concomitant]
  5. BACTRIM DS [Concomitant]

REACTIONS (7)
  - ABDOMINAL PAIN UPPER [None]
  - ABDOMINAL TENDERNESS [None]
  - BREATH SOUNDS DECREASED [None]
  - DECREASED VENTRICULAR AFTERLOAD [None]
  - DYSPNOEA [None]
  - EJECTION FRACTION DECREASED [None]
  - TACHYCARDIA [None]
